FAERS Safety Report 5045785-9 (Version None)
Quarter: 2006Q3

REPORT INFORMATION
  Report Type: 
  Country: None (occurrence: None)
  Receive Date: 20060710
  Receipt Date: 20060629
  Transmission Date: 20061208
  Serious: Yes (Other)
  Sender: FDA-Public Use
  Company Number: PHEH2006US08549

PATIENT
  Sex: Male

DRUGS (3)
  1. ZOCOR [Concomitant]
  2. LIPITOR [Concomitant]
  3. LAMISIL [Suspect]
     Indication: NAIL TINEA
     Route: 065

REACTIONS (1)
  - RHABDOMYOLYSIS [None]
